FAERS Safety Report 5151285-8 (Version None)
Quarter: 2006Q4

REPORT INFORMATION
  Report Type: 
  Country: None (occurrence: None)
  Receive Date: 20061115
  Receipt Date: 20061110
  Transmission Date: 20070319
  Serious: Yes (Death)
  Sender: FDA-Public Use
  Company Number: 2006AC02127

PATIENT
  Age: 34 Year

DRUGS (2)
  1. QUETIAPINE FUMARATE [Suspect]
     Route: 048
  2. BUPROPION HCL [Suspect]
     Route: 048

REACTIONS (1)
  - COMPLETED SUICIDE [None]
